FAERS Safety Report 14232933 (Version 1)
Quarter: 2017Q4

REPORT INFORMATION
  Report Type: Spontaneous
  Country: US (occurrence: US)
  Receive Date: 20171128
  Receipt Date: 20171128
  Transmission Date: 20180321
  Serious: No
  Sender: FDA-Public Use
  Company Number: US-LEADIANT BIOSCIENCES INC-2017STPI000009

PATIENT
  Age: 42 Year
  Sex: Male

DRUGS (1)
  1. MATULANE [Suspect]
     Active Substance: PROCARBAZINE HYDROCHLORIDE
     Indication: SMALL INTESTINE CARCINOMA
     Dosage: 150 MG QHS ON DAYS 1 + 2, FOLLOWED BY 100 MG QHS ON DAY 3 FOR 14 DAYS PER CYLE
     Route: 048
     Dates: start: 20160901

REACTIONS (2)
  - Rash [Unknown]
  - Malaise [Unknown]

NARRATIVE: CASE EVENT DATE: 20161223
